FAERS Safety Report 4641804-X (Version None)
Quarter: 2005Q2

REPORT INFORMATION
  Report Type: 
  Country: None (occurrence: None)
  Receive Date: 20050421
  Receipt Date: 20050413
  Transmission Date: 20051028
  Serious: Yes (Hospitalization, Other)
  Sender: FDA-Public Use
  Company Number: US-MERCK-0504USA02306

PATIENT
  Age: 63 Year
  Sex: Male

DRUGS (3)
  1. ZOCOR [Suspect]
     Indication: HYPERCHOLESTEROLAEMIA
     Route: 048
     Dates: start: 19991101, end: 20050111
  2. PRINZIDE [Concomitant]
     Route: 048
  3. VIOXX [Concomitant]
     Route: 048

REACTIONS (1)
  - POLYARTERITIS NODOSA [None]
